FAERS Safety Report 5343346-5 (Version None)
Quarter: 2007Q2

REPORT INFORMATION
  Report Type: 
  Country: None (occurrence: None)
  Receive Date: 20070501
  Receipt Date: 20070223
  Transmission Date: 20071010
  Serious: No
  Sender: FDA-Public Use
  Company Number: 200711240US

PATIENT
  Age: 56 Year
  Sex: Female

DRUGS (2)
  1. KETEK [Suspect]
     Indication: SINUSITIS
     Dosage: 800 MG QD PO
     Route: 048
     Dates: start: 20070220, end: 20070224
  2. ESTROGENS CONJUGATED (PREMARIN /00073001/) [Concomitant]

REACTIONS (1)
  - VISION BLURRED [None]
